FAERS Safety Report 9416823 (Version 1)
Quarter: 2013Q3

REPORT INFORMATION
  Report Type: Spontaneous
  Country: US (occurrence: None)
  Receive Date: 20130719
  Receipt Date: 20130719
  Transmission Date: 20140515
  Serious: Yes (Hospitalization)
  Sender: FDA-Public Use
  Company Number: SYM-2013-06239

PATIENT
  Sex: 0

DRUGS (1)
  1. ZYCLARA [Suspect]
     Indication: ANOGENITAL WARTS

REACTIONS (2)
  - Adverse drug reaction [None]
  - Wrong technique in drug usage process [None]
